FAERS Safety Report 9636719 (Version 1)
Quarter: 2013Q4

REPORT INFORMATION
  Report Type: Spontaneous
  Country: GB (occurrence: GB)
  Receive Date: 20131022
  Receipt Date: 20131022
  Transmission Date: 20140711
  Serious: Yes (Other)
  Sender: FDA-Public Use
  Company Number: GB-ACCORD-019862

PATIENT
  Sex: Female

DRUGS (1)
  1. TRAMADOL [Suspect]
     Indication: INJURY
     Dosage: 100 MG, QID
     Route: 048
     Dates: start: 201212, end: 201306

REACTIONS (3)
  - Depression [Not Recovered/Not Resolved]
  - Anxiety [Not Recovered/Not Resolved]
  - Withdrawal syndrome [Not Recovered/Not Resolved]
